FAERS Safety Report 14054647 (Version 1)
Quarter: 2017Q4

REPORT INFORMATION
  Report Type: Spontaneous
  Country: US (occurrence: None)
  Receive Date: 20171006
  Receipt Date: 20171006
  Transmission Date: 20180321
  Serious: Yes (Death)
  Sender: FDA-Public Use
  Company Number: None

PATIENT
  Age: 16 Year
  Sex: Male
  Weight: 87.6 kg

DRUGS (4)
  1. VINCRISTINE SULFATE. [Suspect]
     Active Substance: VINCRISTINE SULFATE
     Dates: end: 20161228
  2. PREDNISONE. [Suspect]
     Active Substance: PREDNISONE
     Dates: end: 20170102
  3. METHOTREXATE. [Suspect]
     Active Substance: METHOTREXATE
     Dates: end: 20161214
  4. ONCASPAR [Suspect]
     Active Substance: PEGASPARGASE
     Dates: end: 20161210

REACTIONS (12)
  - Colitis [None]
  - Hypotension [None]
  - Bradycardia [None]
  - Hepatomegaly [None]
  - Sepsis [None]
  - Lactic acidosis [None]
  - Hepatic failure [None]
  - Pleural effusion [None]
  - Renal failure [None]
  - Respiratory failure [None]
  - Ascites [None]
  - Disseminated intravascular coagulation [None]

NARRATIVE: CASE EVENT DATE: 20161230
